FAERS Safety Report 17111063 (Version 2)
Quarter: 2019Q4

REPORT INFORMATION
  Report Type: Spontaneous
  Country: ES (occurrence: ES)
  Receive Date: 20191204
  Receipt Date: 20191211
  Transmission Date: 20200122
  Serious: Yes (Other)
  Sender: FDA-Public Use
  Company Number: ES-JNJFOC-20191135542

PATIENT
  Age: 50 Year
  Sex: Female
  Weight: 47.7 kg

DRUGS (6)
  1. KETOCONAZOLE. [Suspect]
     Active Substance: KETOCONAZOLE
     Dosage: MAXIMUM DOSES
     Route: 048
     Dates: end: 20190325
  2. CABERGOLINE. [Concomitant]
     Active Substance: CABERGOLINE
     Indication: HYPERADRENOCORTICISM
     Route: 065
  3. KETOCONAZOLE. [Suspect]
     Active Substance: KETOCONAZOLE
     Dosage: KETOCONAZOLE COULD BE REDUCED TO 800-1000 MG/DAY
     Route: 048
  4. KETOCONAZOLE. [Suspect]
     Active Substance: KETOCONAZOLE
     Indication: HYPERADRENOCORTICISM
     Route: 048
     Dates: start: 201205
  5. KETOCONAZOLE. [Suspect]
     Active Substance: KETOCONAZOLE
     Dosage: KETOCONAZOLE COULD BE REDUCED TO 800-1000 MG/DAY
     Route: 048
  6. KETOCONAZOLE. [Suspect]
     Active Substance: KETOCONAZOLE
     Route: 048
     Dates: start: 20190329

REACTIONS (2)
  - Hypokalaemia [Recovered/Resolved]
  - Apparent mineralocorticoid excess [Recovered/Resolved]

NARRATIVE: CASE EVENT DATE: 201809
